FAERS Safety Report 15751276 (Version 2)
Quarter: 2019Q1

REPORT INFORMATION
  Report Type: Spontaneous
  Country: JP (occurrence: JP)
  Receive Date: 20181221
  Receipt Date: 20190102
  Transmission Date: 20190417
  Serious: Yes (Other)
  Sender: FDA-Public Use
  Company Number: JP-PFIZER INC-2010161961

PATIENT
  Age: 77 Year
  Sex: Male
  Weight: 59.7 kg

DRUGS (1)
  1. METHOTREXATE SODIUM. [Suspect]
     Active Substance: METHOTREXATE SODIUM
     Indication: RHEUMATOID ARTHRITIS
     Dosage: UNK
     Dates: start: 2006

REACTIONS (1)
  - Hepatosplenic T-cell lymphoma [Recovering/Resolving]

NARRATIVE: CASE EVENT DATE: 201004
